FAERS Safety Report 7730048-0 (Version None)
Quarter: 2011Q3

REPORT INFORMATION
  Report Type: 
  Country: None (occurrence: None)
  Receive Date: 20110906
  Receipt Date: 20110824
  Transmission Date: 20111222
  Serious: Yes (Hospitalization)
  Sender: FDA-Public Use
  Company Number: US-ROCHE-796346

PATIENT
  Sex: Male
  Weight: 73.9 kg

DRUGS (11)
  1. LEVOTHYROXINE SODIUM [Concomitant]
     Dates: start: 20101112
  2. LEVOTHYROXINE SODIUM [Concomitant]
  3. AMLODIPINE [Concomitant]
     Dates: start: 20101112
  4. LASIX [Concomitant]
     Dates: start: 20110502
  5. TIMOLOL EYE DROPS [Concomitant]
     Dates: start: 20101112
  6. ALTACE [Concomitant]
  7. PEMETREXED [Suspect]
     Indication: NON-SMALL CELL LUNG CANCER
     Route: 042
     Dates: start: 20101207, end: 20110725
  8. COSOPT [Concomitant]
     Dosage: 2% EYE DROP
     Dates: start: 20101112
  9. BEVACIZUMAB [Suspect]
     Indication: NON-SMALL CELL LUNG CANCER
     Route: 042
     Dates: start: 20101207, end: 20110725
  10. LASIX [Concomitant]
  11. TERAZOSIN HCL [Concomitant]
     Dates: start: 20101112

REACTIONS (5)
  - HYPOALBUMINAEMIA [None]
  - ANAEMIA [None]
  - DYSPNOEA [None]
  - PLEURAL EFFUSION [None]
  - CHRONIC OBSTRUCTIVE PULMONARY DISEASE [None]
